FAERS Safety Report 8170680-6 (Version None)
Quarter: 2012Q1

REPORT INFORMATION
  Report Type: 
  Country: None (occurrence: None)
  Receive Date: 20120228
  Receipt Date: 20120217
  Transmission Date: 20120608
  Serious: Yes (Other)
  Sender: FDA-Public Use
  Company Number: US-PFIZER INC-2012043234

PATIENT
  Sex: Male

DRUGS (9)
  1. ULTRAM [Suspect]
     Dosage: 1 DF, AS NEEDED
     Route: 065
  2. MORPHINE SULFATE [Suspect]
     Indication: PAIN
     Dosage: 20 MG, 4X/DAY
  3. ANEXSIA [Suspect]
     Dosage: UNK
  4. MS CONTIN [Suspect]
     Indication: PAIN
     Dosage: 30 MG, 4X/DAY
     Route: 048
  5. PERCODAN-DEMI [Suspect]
     Indication: PAIN
     Dosage: 1 DF, 4X/DAY, PRN
  6. MORPHINE SULFATE [Suspect]
     Indication: BREAKTHROUGH PAIN
     Dosage: 0.5 ML, DAILY
  7. OXYCODONE HCL [Suspect]
     Dosage: 5 MG, UNK
  8. OXYCODONE HCL [Suspect]
     Dosage: 30 MG, UNK
     Route: 065
  9. HYDROCODONE [Suspect]
     Dosage: UNK

REACTIONS (20)
  - GINGIVAL DISORDER [None]
  - RENAL DISORDER [None]
  - PAIN IN EXTREMITY [None]
  - PROSTATOMEGALY [None]
  - HEPATIC CIRRHOSIS [None]
  - HEPATIC LESION [None]
  - SOMNOLENCE [None]
  - TOOTH EROSION [None]
  - PAIN [None]
  - MALAISE [None]
  - GYNAECOMASTIA [None]
  - DIABETES MELLITUS [None]
  - PORTAL HYPERTENSION [None]
  - TOOTH DECALCIFICATION [None]
  - DENTAL CARIES [None]
  - PROSTATIC DISORDER [None]
  - POLLAKIURIA [None]
  - TOOTH LOSS [None]
  - LOOSE TOOTH [None]
  - SPLEEN DISORDER [None]
